FAERS Safety Report 17390088 (Version 1)
Quarter: 2020Q1

REPORT INFORMATION
  Report Type: Report from Study
  Country: RU (occurrence: RU)
  Receive Date: 20200207
  Receipt Date: 20200207
  Transmission Date: 20200409
  Serious: Yes (Other)
  Sender: FDA-Public Use
  Company Number: RU-ASTRAZENECA-2020SE18330

PATIENT
  Age: 77 Year
  Sex: Female

DRUGS (2)
  1. SIOFOR [Concomitant]
     Active Substance: METFORMIN HYDROCHLORIDE
  2. FORXIGA [Suspect]
     Active Substance: DAPAGLIFLOZIN
     Indication: TYPE 2 DIABETES MELLITUS
     Route: 048
     Dates: start: 201912

REACTIONS (11)
  - Blood glucose increased [Unknown]
  - Blister [Unknown]
  - Nausea [Unknown]
  - Asphyxia [Unknown]
  - Hypersensitivity [Unknown]
  - Bradycardia [Unknown]
  - Erythema [Unknown]
  - Pruritus allergic [Unknown]
  - Abdominal pain [Unknown]
  - Diarrhoea [Unknown]
  - Decreased appetite [Unknown]
